FAERS Safety Report 6020469-9 (Version None)
Quarter: 2008Q4

REPORT INFORMATION
  Report Type: 
  Country: None (occurrence: None)
  Receive Date: 20081222
  Receipt Date: 20060628
  Transmission Date: 20090506
  Serious: Yes (Death, Hospitalization, Other)
  Sender: FDA-Public Use
  Company Number: 530#5#2006-00031

PATIENT
  Age: 77 Year
  Sex: Female

DRUGS (28)
  1. ALPROSTADIL [Suspect]
     Indication: PERIPHERAL ISCHAEMIA
     Dosage: 2 X 40 MCG PER DAY INTRAVENOUS DRIP
     Route: 041
     Dates: start: 20060516, end: 20060612
  2. KETOPROFEN 100MG, AMPOULES (KETOPROFEN) [Concomitant]
  3. PETHIDINE HYDROCHLORIDE 50MG, AMPOULES (PETHIDINE HYDROCHLORIDE) [Concomitant]
  4. PETHIDINE HYDROCHLORIDE 100MG, AMPOULES (PETHIDINE HYDROCHLORIDE) [Concomitant]
  5. FUROSEMIDE [Concomitant]
  6. AMLODIPINE 5MG, TABLETS (AMLODIPINE) [Concomitant]
  7. TICLOPIDINE 250MG, TABLETS (TICLOPIDINE) [Concomitant]
  8. POTASSIUM CHLORIDE 750MG, TABLETS (POTASSIUM CHLORIDE) [Concomitant]
  9. RANITIDINE HYDROCHLORIDE 150MG, TABLETS (RANITIDINE HYDROCHLORIDE) [Concomitant]
  10. HEPARIN SODIUM 24000IU, AMPOULES (HEPARIN SODIUM) [Concomitant]
  11. RANITIDINE 100MG, AMPOULES (RANITIDINE) [Concomitant]
  12. SODIUM CHLORIDE 0.9%, SOLUTION (SODIUM CHLORIDE) [Concomitant]
  13. ENOXALARIN SODIUM 40MG, AMPOULES (HEPARIN-FRACTION, SODIUM SALT) [Concomitant]
  14. FUROSEMIDE 40MG, AMPOULES (FUROSEMIDE) [Concomitant]
  15. MIDAZOLAM 50MG, AMPOULES (MIDAZOLAM) [Concomitant]
  16. POTASSIUM CHLORIDE 3G, AMPOULES (POTASSIUM CHLORIDE) [Concomitant]
  17. FUROSEMIDE 20MG, AMPOULES (FUROSEMIDE) [Concomitant]
  18. METOCLOPRAMIDE 10MG, AMPOULES (METOCLOPRAMIDE) [Concomitant]
  19. OMEPRAZOLE 40MG, AMPOULES (OMEPRAZOLE) [Concomitant]
  20. AMINOPHYLLINE 250MG, AMPOULES (AMINOPHYLLINE) [Concomitant]
  21. HYDROCORTISONE HEMISUCCINATE 200MG, AMPOULES (HYDROCORTISONE HYDROGEN [Concomitant]
  22. THIETHYLPERAZINE MALEATE 6.5MG, AMPOULES (THIETHYLPERAZINE MALEATE) [Concomitant]
  23. CEFTAZIDIME 1G, AMPOULES (CEFTAZIDIME) [Concomitant]
  24. METRONIDAZOLE 500MG, AMPOULES (METRONIDAZOLE) [Concomitant]
  25. AMBROXOL HYDROCHLORIDE 15MG, AMPOULES (AMBROXOL HYDROCHLORIDE) [Concomitant]
  26. KETOCONAZOLE [Concomitant]
  27. VANCOMYCIN 1G, AMPOULES (VANCOMYCIN) [Concomitant]
  28. OMEPRAZOLE 160MG, AMPOULES (OMEPRAZOLE) [Concomitant]

REACTIONS (15)
  - BRONCHOPNEUMONIA [None]
  - CONDITION AGGRAVATED [None]
  - DISEASE PROGRESSION [None]
  - DUODENAL ULCER [None]
  - ELECTROLYTE IMBALANCE [None]
  - GASTRIC HAEMORRHAGE [None]
  - GASTRIC ULCER HAEMORRHAGE [None]
  - LEG AMPUTATION [None]
  - MUCOSAL EROSION [None]
  - NECROSIS ISCHAEMIC [None]
  - PULMONARY MICROEMBOLI [None]
  - RENAL FAILURE [None]
  - RESPIRATORY FAILURE [None]
  - SKIN ULCER [None]
  - VOMITING [None]
